FAERS Safety Report 13478898 (Version 1)
Quarter: 2017Q2

REPORT INFORMATION
  Report Type: Spontaneous
  Country: US (occurrence: US)
  Receive Date: 20170425
  Receipt Date: 20170425
  Transmission Date: 20170830
  Serious: Yes (Other)
  Sender: FDA-Public Use
  Company Number: US-GLAXOSMITHKLINE-US2017058552

PATIENT
  Age: 58 Year
  Sex: Female

DRUGS (1)
  1. SENSODYNE COMPLETE PROTECTION [Suspect]
     Active Substance: STANNOUS FLUORIDE
     Indication: SENSITIVITY OF TEETH
     Dosage: UNK
     Dates: start: 20170420, end: 20170420

REACTIONS (7)
  - Ill-defined disorder [Unknown]
  - Dyspnoea [Recovered/Resolved]
  - Accidental exposure to product [Unknown]
  - Oral discomfort [Recovered/Resolved]
  - Stomatitis [Not Recovered/Not Resolved]
  - Accidental device ingestion [Unknown]
  - Vomiting [Recovered/Resolved]

NARRATIVE: CASE EVENT DATE: 20170420
